FAERS Safety Report 9288013 (Version 2)
Quarter: 2013Q3

REPORT INFORMATION
  Report Type: Spontaneous
  Country: US (occurrence: US)
  Receive Date: 20130514
  Receipt Date: 20130724
  Transmission Date: 20140515
  Serious: No
  Sender: FDA-Public Use
  Company Number: US-ELI_LILLY_AND_COMPANY-US201305002984

PATIENT
  Sex: Male
  Weight: 86.17 kg

DRUGS (2)
  1. CIALIS [Suspect]
     Indication: ERECTILE DYSFUNCTION
     Dosage: 5 MG, QD
     Dates: start: 20130327, end: 20130403
  2. CIALIS [Suspect]
     Dosage: 20 MG, PRN
     Dates: start: 201304

REACTIONS (1)
  - Dysphagia [Recovered/Resolved]
